FAERS Safety Report 17874255 (Version 1)
Quarter: 2020Q2

REPORT INFORMATION
  Report Type: Spontaneous
  Country: US (occurrence: US)
  Receive Date: 20200609
  Receipt Date: 20200609
  Transmission Date: 20200714
  Serious: No
  Sender: FDA-Public Use
  Company Number: US-AUROBINDO-AUR-APL-2020-005977

PATIENT
  Sex: Female
  Weight: 68.04 kg

DRUGS (6)
  1. TRAZODONE [Concomitant]
     Active Substance: TRAZODONE HYDROCHLORIDE
     Indication: SLEEP DISORDER
     Dosage: UNK
     Route: 065
  2. NEXIUM [Concomitant]
     Active Substance: ESOMEPRAZOLE MAGNESIUM
     Indication: PRODUCT USED FOR UNKNOWN INDICATION
     Dosage: UNK
     Route: 065
  3. ROSUVASTATIN CALCIUM TABLET 5 MG [Suspect]
     Active Substance: ROSUVASTATIN CALCIUM
     Indication: BLOOD CHOLESTEROL INCREASED
     Dosage: 5 MILLIGRAM, ONCE A DAY(BY MOUTH WITH WATER EVERY MORNING)
     Route: 048
     Dates: start: 2018, end: 20200122
  4. VENLAFAXINE HYDROCHLORIDE EXTENDED-RELEASE CAPSULES 75MG [Suspect]
     Active Substance: VENLAFAXINE HYDROCHLORIDE
     Indication: DEPRESSION
     Dosage: 75 MILLIGRAM, 3 TIMES A DAY
     Route: 048
     Dates: start: 20191024
  5. CLAVINEX [Concomitant]
     Indication: HYPERSENSITIVITY
     Dosage: UNK
     Route: 065
  6. TAMSULOSIN [Concomitant]
     Active Substance: TAMSULOSIN
     Indication: BLADDER DISORDER
     Dosage: UNK
     Route: 065

REACTIONS (2)
  - Pain in extremity [Not Recovered/Not Resolved]
  - Blood creatine phosphokinase increased [Not Recovered/Not Resolved]

NARRATIVE: CASE EVENT DATE: 20190923
